FAERS Safety Report 8784206 (Version 2)
Quarter: 2012Q4

REPORT INFORMATION
  Report Type: Spontaneous
  Country: US (occurrence: None)
  Receive Date: 20120830
  Receipt Date: 20120913
  Transmission Date: 20130627
  Serious: Yes (Other)
  Sender: FDA-Public Use
  Company Number: JPI-P-024210

PATIENT
  Age: 33 Year
  Sex: Male

DRUGS (6)
  1. XYREM [Suspect]
     Dosage: (2.25 gm,2 in 1 d)
     Route: 048
     Dates: start: 20081128
  2. XYREM [Suspect]
     Route: 048
  3. XYREM [Suspect]
     Dosage: (3.5 gm,2 in 1 d)
     Route: 048
     Dates: start: 20111201
  4. XYREM [Suspect]
  5. XYREM [Suspect]
  6. UNSPECIFIED PAIN MEDICATIONS [Concomitant]

REACTIONS (1)
  - Surgery [None]
